FAERS Safety Report 9647932 (Version 2)
Quarter: 2014Q2

REPORT INFORMATION
  Report Type: Spontaneous
  Country: US (occurrence: US)
  Receive Date: 20131028
  Receipt Date: 20140617
  Transmission Date: 20141212
  Serious: No
  Sender: FDA-Public Use
  Company Number: US-PFIZER INC-2013306327

PATIENT
  Age: 58 Year
  Sex: Female
  Weight: 68.03 kg

DRUGS (9)
  1. LYRICA [Suspect]
     Indication: BACK PAIN
     Dosage: 75 MG, 2X/DAY
     Dates: start: 201310, end: 201310
  2. GABAPENTIN [Concomitant]
     Indication: BACK PAIN
     Dosage: UNK
  3. PERCOCET [Concomitant]
     Indication: BACK PAIN
     Dosage: UNK
  4. OXYCONTIN [Concomitant]
     Indication: BACK PAIN
     Dosage: UNK
  5. VALIUM [Concomitant]
     Indication: BACK PAIN
     Dosage: UNK
  6. EFFEXOR [Concomitant]
     Indication: DEPRESSION
     Dosage: UNK
  7. ATENOLOL [Concomitant]
     Indication: CARDIAC DISORDER
     Dosage: UNK
  8. DILTIAZEM [Concomitant]
     Indication: CARDIAC DISORDER
     Dosage: UNK
  9. ALTACE [Concomitant]
     Indication: CARDIAC DISORDER
     Dosage: UNK

REACTIONS (1)
  - Hyperhidrosis [Unknown]
